FAERS Safety Report 6280301-5 (Version None)
Quarter: 2009Q3

REPORT INFORMATION
  Report Type: 
  Country: None (occurrence: None)
  Receive Date: 20090724
  Receipt Date: 20090722
  Transmission Date: 20100115
  Serious: No
  Sender: FDA-Public Use
  Company Number: US-B.I. PHARMACEUTICALS,INC./RIDGEFIELD-2009-BP-08687BP

PATIENT
  Sex: Female

DRUGS (3)
  1. AGGRENOX [Suspect]
     Indication: CEREBROVASCULAR ACCIDENT
     Route: 048
     Dates: start: 20090717, end: 20090718
  2. VITAMINS [Concomitant]
  3. CPAP [Concomitant]
     Indication: SLEEP APNOEA SYNDROME

REACTIONS (7)
  - BLINDNESS [None]
  - HEADACHE [None]
  - NAUSEA [None]
  - NECK PAIN [None]
  - SUICIDAL IDEATION [None]
  - THIRST [None]
  - WEIGHT DECREASED [None]
